FAERS Safety Report 7804131-5 (Version None)
Quarter: 2011Q4

REPORT INFORMATION
  Report Type: 
  Country: None (occurrence: None)
  Receive Date: 20111010
  Receipt Date: 20111003
  Transmission Date: 20120403
  Serious: Yes (Other)
  Sender: FDA-Public Use
  Company Number: US-AMGEN-USASP2011050880

PATIENT
  Age: 64 Year
  Sex: Female

DRUGS (3)
  1. EPOGEN [Suspect]
     Indication: DIALYSIS
     Dosage: UNK
  2. ARANESP [Suspect]
     Indication: ANAEMIA OF MALIGNANT DISEASE
     Dosage: 300 MUG, Q3WK
     Dates: start: 20110501, end: 20110801
  3. VELCADE [Concomitant]

REACTIONS (2)
  - BLOOD COUNT ABNORMAL [None]
  - RENAL IMPAIRMENT [None]
